FAERS Safety Report 10423040 (Version 1)
Quarter: 2014Q3

REPORT INFORMATION
  Report Type: Spontaneous
  Country: US (occurrence: None)
  Receive Date: 20140722
  Receipt Date: 20140722
  Transmission Date: 20150326
  Serious: No
  Sender: FDA-Public Use
  Company Number: 163-10004-14053931

PATIENT
  Age: 53 Year
  Sex: Male

DRUGS (12)
  1. MULTIVIT (MULTIVIT) (UNKNOWN)? [Concomitant]
  2. DIOVAN (VALSARTAN) (UNKNOWN) [Concomitant]
  3. LOVAZA (OMEGA-3 MARIN TRIGLYCERIDES) (UNKNOWN) [Concomitant]
  4. WELCHOL (COLESEVELAM HYDROCHLORIDE) (UNKNOWN) [Concomitant]
  5. PREDNISONE (PREDNISONE) (UNKNOWN) [Concomitant]
     Active Substance: PREDNISONE
  6. ZYRETC (CETIRIZINE HYDROCHLORIDE) (UNKNOWN) [Concomitant]
  7. LANTUS (INSULIN GLARGINE) (UNKNOWN) [Concomitant]
  8. TRAMADOL (TRAMADOL) (UNKNOWN) [Concomitant]
  9. BYSTOLIC (NEBIVOLOL HYDROCHLORIDE) (UNKNOWN) [Concomitant]
  10. METFORMIN (METFORMIN) (UNKNOWN) [Concomitant]
  11. JANUVIA (SITAGLIPTIN PHOSPHATE) (UNKNOWN) [Concomitant]
  12. OTEZLA [Suspect]
     Active Substance: APREMILAST
     Indication: PRODUCT USED FOR UNKNOWN INDICATION
     Route: 048
     Dates: start: 20140514

REACTIONS (1)
  - Headache [None]

NARRATIVE: CASE EVENT DATE: 20140516
